FAERS Safety Report 9761755 (Version 1)
Quarter: 2013Q4

REPORT INFORMATION
  Report Type: Spontaneous
  Country: US (occurrence: US)
  Receive Date: 20131216
  Receipt Date: 20131216
  Transmission Date: 20140711
  Serious: No
  Sender: FDA-Public Use
  Company Number: US-BIOGENIDEC-2013BI107291

PATIENT
  Age: 58 Year
  Sex: Female

DRUGS (10)
  1. TECFIDERA [Suspect]
     Indication: MULTIPLE SCLEROSIS
     Route: 048
     Dates: start: 20131020
  2. TECFIDERA [Suspect]
     Indication: MULTIPLE SCLEROSIS
     Route: 048
  3. AVONEX [Concomitant]
     Route: 030
  4. ADVIL [Concomitant]
  5. CITALOPRAM [Concomitant]
  6. DIGOXIN [Concomitant]
  7. LIPITOR [Concomitant]
  8. TOPROL [Concomitant]
  9. VITAMIN D [Concomitant]
  10. OXYBUTYNIN CHLORIDE ER [Concomitant]

REACTIONS (3)
  - Nausea [Not Recovered/Not Resolved]
  - Flushing [Not Recovered/Not Resolved]
  - Abdominal discomfort [Unknown]
